FAERS Safety Report 21946651 (Version 1)
Quarter: 2023Q1

REPORT INFORMATION
  Report Type: Spontaneous
  Country: US (occurrence: None)
  Receive Date: 20230202
  Receipt Date: 20230202
  Transmission Date: 20230417
  Serious: Yes (Disabling)
  Sender: FDA-Public Use
  Company Number: None

PATIENT
  Age: 54 Year
  Sex: Female
  Weight: 69.75 kg

DRUGS (9)
  1. DAYTIME NON DROWSY [Suspect]
     Active Substance: ACETAMINOPHEN\DEXTROMETHORPHAN HYDROBROMIDE\PHENYLEPHRINE HYDROCHLORIDE
     Indication: Nasal congestion
     Dosage: OTHER QUANTITY : 1 CAPFUL;?FREQUENCY : EVERY 12 HOURS;?
     Route: 048
     Dates: start: 20230123, end: 20230125
  2. ACETAMINOPHEN\DEXTROMETHORPHAN HYDROBROMIDE\DOXYLAMINE SUCCINATE [Suspect]
     Active Substance: ACETAMINOPHEN\DEXTROMETHORPHAN HYDROBROMIDE\DOXYLAMINE SUCCINATE
     Indication: Headache
     Dosage: OTHER QUANTITY : 1 CAPFUL;?FREQUENCY : AT BEDTIME;?
     Route: 048
     Dates: start: 20230123, end: 20230124
  3. HYDROCHLOROTHIAZIDE [Concomitant]
     Active Substance: HYDROCHLOROTHIAZIDE
  4. LISINOPRIL [Concomitant]
     Active Substance: LISINOPRIL
  5. ALBUTEROL [Concomitant]
     Active Substance: ALBUTEROL
  6. BREO ELLIPTA [Concomitant]
     Active Substance: FLUTICASONE FUROATE\VILANTEROL TRIFENATATE
  7. CLONAZEPAM [Concomitant]
     Active Substance: CLONAZEPAM
  8. RISPERIDONE [Concomitant]
     Active Substance: RISPERIDONE
  9. MELATONIN [Concomitant]
     Active Substance: MELATONIN

REACTIONS (7)
  - Lip swelling [None]
  - Urticaria [None]
  - Erythema [None]
  - Pruritus [None]
  - Feeling hot [None]
  - Illness [None]
  - Impaired work ability [None]

NARRATIVE: CASE EVENT DATE: 20230125
